FAERS Safety Report 5189916-9 (Version None)
Quarter: 2006Q4

REPORT INFORMATION
  Report Type: 
  Country: None (occurrence: None)
  Receive Date: 20061218
  Receipt Date: 20061204
  Transmission Date: 20070319
  Serious: Yes (Hospitalization, Other)
  Sender: FDA-Public Use
  Company Number: GXKR2006GB04890

PATIENT
  Age: 67 Year
  Sex: Male

DRUGS (7)
  1. ASPIRIN [Suspect]
     Indication: MYOCARDIAL INFARCTION
     Dosage: 300 MG, ORAL
     Route: 048
  2. ENOXAPARIN (ENOXAPARIN, HEPARIN-FRACTION) [Suspect]
     Indication: MYOCARDIAL INFARCTION
     Dosage: 70 MG, Q12H, SUBCUTANEOUS
     Route: 058
  3. HEPARIN [Suspect]
     Indication: MYOCARDIAL INFARCTION
     Dosage: 5000, INTRAVENOUS
     Route: 042
  4. TENECTEPLASE (TENECTEPLASE) [Suspect]
     Indication: MYOCARDIAL INFARCTION
     Dosage: 8000, INTRAVENOUS
     Route: 042
  5. NITRATES (NITRATES) [Suspect]
     Indication: CHEST PAIN
     Dosage: INTRAVENOUS
     Route: 042
  6. DOXAZOSIN MESYLATE [Concomitant]
  7. LOSARTAN POTASSIUM [Concomitant]

REACTIONS (13)
  - ABDOMINAL PAIN UPPER [None]
  - CHEST PAIN [None]
  - DRUG INEFFECTIVE [None]
  - DYSPHAGIA [None]
  - ELECTROCARDIOGRAM ST SEGMENT ELEVATION [None]
  - HAEMATEMESIS [None]
  - HAEMOGLOBIN DECREASED [None]
  - HYPERHIDROSIS [None]
  - MYOCARDIAL INFARCTION [None]
  - NAUSEA [None]
  - ODYNOPHAGIA [None]
  - OESOPHAGEAL HAEMORRHAGE [None]
  - OESOPHAGEAL PERFORATION [None]
